FAERS Safety Report 7187651-9 (Version None)
Quarter: 2010Q4

REPORT INFORMATION
  Report Type: 
  Country: None (occurrence: None)
  Receive Date: 20101222
  Receipt Date: 20100702
  Transmission Date: 20110411
  Serious: No
  Sender: FDA-Public Use
  Company Number: US-AMGEN-KDL422274

PATIENT

DRUGS (1)
  1. ENBREL [Suspect]
     Indication: PSORIASIS
     Dosage: 50 MG, QWK
     Route: 058
     Dates: start: 20030601, end: 20091201

REACTIONS (4)
  - FATIGUE [None]
  - MOOD ALTERED [None]
  - PSORIASIS [None]
  - THERAPEUTIC RESPONSE DECREASED [None]
